FAERS Safety Report 7428872-7 (Version None)
Quarter: 2011Q2

REPORT INFORMATION
  Report Type: 
  Country: None (occurrence: None)
  Receive Date: 20110413
  Receipt Date: 20110330
  Transmission Date: 20111010
  Serious: Yes (Hospitalization)
  Sender: FDA-Public Use
  Company Number: 2011-0679

PATIENT
  Age: 7 Year
  Sex: 0
  Weight: 15 kg

DRUGS (2)
  1. OTHER CHRONIC MEDICATIONS (ALL OTHER THERAPEUTIC PRODUCTS [Concomitant]
  2. INCRELEX [Suspect]
     Indication: FOETAL GROWTH RESTRICTION
     Dosage: 0.24 MG/KG (0.12 MG/KG, 2 IN 1 D), SUBCUTANEOUS
     Route: 058
     Dates: start: 20100629

REACTIONS (1)
  - HEPATIC CIRRHOSIS [None]
